FAERS Safety Report 17945975 (Version 5)
Quarter: 2021Q4

REPORT INFORMATION
  Report Type: Spontaneous
  Country: IT (occurrence: IT)
  Receive Date: 20200625
  Receipt Date: 20211006
  Transmission Date: 20220303
  Serious: Yes (Other)
  Sender: FDA-Public Use
  Company Number: NVSC2020IT175335

PATIENT
  Age: 29 Year
  Sex: Female

DRUGS (18)
  1. METHYLPREDNISOLONE [Suspect]
     Active Substance: METHYLPREDNISOLONE
     Indication: Encephalitis autoimmune
     Dosage: 1 G BOLUSES, QD (7 DAYS) (BOLUS ADMINISTRATION)
     Route: 065
  2. TOPIRAMATE [Suspect]
     Active Substance: TOPIRAMATE
     Indication: Seizure
     Dosage: UNK, FULL DOSAGE
     Route: 065
  3. TOPIRAMATE [Suspect]
     Active Substance: TOPIRAMATE
     Indication: Movement disorder
  4. LEVETIRACETAM [Suspect]
     Active Substance: LEVETIRACETAM
     Indication: Movement disorder
     Dosage: 500 MG, BID FULL DOSAGE
     Route: 065
  5. LEVETIRACETAM [Suspect]
     Active Substance: LEVETIRACETAM
     Indication: Seizure
  6. LACOSAMIDE [Suspect]
     Active Substance: LACOSAMIDE
     Indication: Seizure
     Dosage: UNK, FULL DOSAGE
     Route: 065
  7. LACOSAMIDE [Suspect]
     Active Substance: LACOSAMIDE
     Indication: Movement disorder
  8. CLOBAZAM [Suspect]
     Active Substance: CLOBAZAM
     Indication: Movement disorder
     Dosage: UNK, FULL DOSAGE
     Route: 065
  9. CLOBAZAM [Suspect]
     Active Substance: CLOBAZAM
     Indication: Seizure
  10. DEXAMETHASONE [Suspect]
     Active Substance: DEXAMETHASONE
     Indication: Encephalitis autoimmune
     Dosage: 20 MG TWICE WEEKLY, FOR 4 WEEKS, AT 6 MONTHS FROM ONSET
     Route: 065
  11. DEXAMETHASONE [Suspect]
     Active Substance: DEXAMETHASONE
     Dosage: 3 CYCLES (FOLLOWED BY OTHER TWO CYCLES; THE THIRD CYCLE WAS INTERRUPTED)
     Route: 065
  12. PHENYTOIN [Suspect]
     Active Substance: PHENYTOIN
     Indication: Seizure
     Dosage: UNK, FULL DOSAGE
     Route: 065
  13. PHENYTOIN [Suspect]
     Active Substance: PHENYTOIN
     Indication: Movement disorder
  14. PHENOBARBITAL [Suspect]
     Active Substance: PHENOBARBITAL
     Indication: Movement disorder
     Dosage: 100 MG, QID FULL DOSAGE
     Route: 065
  15. PHENOBARBITAL [Suspect]
     Active Substance: PHENOBARBITAL
     Indication: Seizure
  16. PERAMPANEL [Suspect]
     Active Substance: PERAMPANEL
     Indication: Movement disorder
     Dosage: 4 MG, BID (FULL DOSAGE)
     Route: 065
  17. PERAMPANEL [Suspect]
     Active Substance: PERAMPANEL
     Indication: Seizure
  18. CYCLOPHOSPHAMIDE [Suspect]
     Active Substance: CYCLOPHOSPHAMIDE
     Indication: Encephalitis autoimmune
     Dosage: 800 MG/M2, UNKNOWN
     Route: 042

REACTIONS (6)
  - Drug ineffective [Unknown]
  - Neurological decompensation [Unknown]
  - Coma [Unknown]
  - Seizure [Unknown]
  - Catatonia [Unknown]
  - Dyskinesia [Unknown]
